FAERS Safety Report 22276274 (Version 1)
Quarter: 2023Q2

REPORT INFORMATION
  Report Type: Report from Study
  Country: AT (occurrence: AT)
  Receive Date: 20230502
  Receipt Date: 20230502
  Transmission Date: 20230721
  Serious: Yes (Other)
  Sender: FDA-Public Use
  Company Number: AT-ABBVIE-4220404

PATIENT
  Age: 32 Year
  Sex: Female

DRUGS (7)
  1. HUMIRA [Suspect]
     Active Substance: ADALIMUMAB
     Indication: Crohn^s disease
     Dosage: STOP DATE TEXT: 36TH PREGNANCY WEEK
     Route: 058
     Dates: start: 2019
  2. PANCRELIPASE [Concomitant]
     Active Substance: PANCRELIPASE
     Indication: Pancreatitis
     Dosage: UNKNOWN
  3. Oleovit [Concomitant]
     Indication: Product used for unknown indication
     Dosage: UNKNOWN
  4. Novalac [Concomitant]
     Indication: Product used for unknown indication
     Dosage: UNKNOWN
  5. LOVENOX [Concomitant]
     Active Substance: ENOXAPARIN SODIUM
     Indication: Thrombosis
     Dosage: UNKNOWN??INJECTION
  6. Calcivit [Concomitant]
     Indication: Product used for unknown indication
     Dosage: UNKNOWN
  7. EUTHYROX [Concomitant]
     Active Substance: LEVOTHYROXINE SODIUM
     Indication: Autoimmune thyroiditis
     Route: 048
     Dates: start: 2009

REACTIONS (4)
  - Cervix dystocia [Unknown]
  - Maternal exposure during pregnancy [Unknown]
  - Diarrhoea [Unknown]
  - Normal newborn [Unknown]

NARRATIVE: CASE EVENT DATE: 20230201
